FAERS Safety Report 15347939 (Version 1)
Quarter: 2018Q3

REPORT INFORMATION
  Report Type: Spontaneous
  Country: US (occurrence: US)
  Receive Date: 20180904
  Receipt Date: 20180904
  Transmission Date: 20181010
  Serious: Yes (Hospitalization, Other)
  Sender: FDA-Public Use
  Company Number: US-QILU PHARMACEUTICAL CO.LTD.-QLU-000640-2018

PATIENT
  Age: 62 Year
  Sex: Female

DRUGS (2)
  1. CEFEPIME HYDROCHLORIDE. [Suspect]
     Active Substance: CEFEPIME HYDROCHLORIDE
     Indication: PNEUMONIA
     Dosage: UNK (ON DAY OF ADMISSION)
     Route: 065
     Dates: start: 2017
  2. TACROLIMUS. [Suspect]
     Active Substance: TACROLIMUS
     Indication: PRODUCT USED FOR UNKNOWN INDICATION
     Dosage: UNK
     Route: 065
     Dates: start: 2017

REACTIONS (8)
  - Moaning [Recovered/Resolved]
  - Agitation [Recovered/Resolved]
  - Aphasia [Recovered/Resolved]
  - Staring [Recovered/Resolved]
  - Neurotoxicity [Recovered/Resolved]
  - Electroencephalogram abnormal [Recovered/Resolved]
  - Mood altered [Recovered/Resolved]
  - Muscle twitching [Recovered/Resolved]
